FAERS Safety Report 5569599-6 (Version None)
Quarter: 2007Q4

REPORT INFORMATION
  Report Type: 
  Country: None (occurrence: None)
  Receive Date: 20071220
  Receipt Date: 20071210
  Transmission Date: 20080405
  Serious: Yes (Hospitalization, Other)
  Sender: FDA-Public Use
  Company Number: GB-ABBOTT-05P-167-0288051-01

PATIENT
  Sex: Female
  Weight: 96.6 kg

DRUGS (16)
  1. SIBUTRAMINE [Suspect]
     Indication: OBESITY
     Route: 048
     Dates: start: 20031001, end: 20050120
  2. METFORMIN HCL [Concomitant]
     Indication: TYPE 2 DIABETES MELLITUS
     Dates: start: 19990804
  3. INSULIN [Concomitant]
     Indication: TYPE 2 DIABETES MELLITUS
     Dosage: 58 UNITS AM/26 UNITS PM
     Dates: start: 20030902
  4. DIHYDROCODEINE [Concomitant]
     Indication: ANALGESIA
     Dates: start: 20040301
  5. KETOPROFEN [Concomitant]
     Indication: ARTHRITIS
     Dates: start: 19980301
  6. FRUMIL [Concomitant]
     Indication: HYPERTENSION
     Dates: start: 20021101
  7. VALSARTAN [Concomitant]
     Indication: MYOCARDIAL ISCHAEMIA
     Dates: start: 20041110
  8. DOXAZOSIN MESYLATE [Concomitant]
     Indication: HYPERTENSION
     Dates: start: 19980801
  9. GLYCERYL TRINITRATE [Concomitant]
     Indication: ANGINA PECTORIS
  10. ACETYLSALICYLIC ACID SRT [Concomitant]
     Indication: MYOCARDIAL ISCHAEMIA
  11. QUININE SULFATE [Concomitant]
     Indication: MUSCLE SPASMS
  12. PANTOPRAZOLE SODIUM [Concomitant]
     Indication: GASTRITIS
     Dates: start: 20040101
  13. ISHN [Concomitant]
     Indication: HYPERTENSION
     Dates: start: 19980801
  14. NICORANDIL [Concomitant]
     Indication: ANGINA PECTORIS
     Dates: start: 20041110, end: 20050125
  15. NICORANDIL [Concomitant]
     Dates: start: 20050125
  16. FRUMIL [Concomitant]
     Dates: start: 20021101

REACTIONS (3)
  - CARDIAC FAILURE CONGESTIVE [None]
  - IRON DEFICIENCY ANAEMIA [None]
  - PULMONARY FIBROSIS [None]
